FAERS Safety Report 8018527-2 (Version None)
Quarter: 2012Q1

REPORT INFORMATION
  Report Type: 
  Country: None (occurrence: None)
  Receive Date: 20120103
  Receipt Date: 20111223
  Transmission Date: 20120608
  Serious: Yes (Hospitalization)
  Sender: FDA-Public Use
  Company Number: KR-MILLENNIUM PHARMACEUTICALS, INC.-2011-06620

PATIENT

DRUGS (3)
  1. PREDNISOLONE [Suspect]
     Indication: MULTIPLE MYELOMA
     Dosage: 60 MG/M2, UNK
     Route: 042
     Dates: start: 20111121, end: 20111124
  2. MELPHALAN HYDROCHLORIDE [Suspect]
     Indication: MULTIPLE MYELOMA
     Dosage: 9 MG/M2, UNK
     Route: 042
     Dates: start: 20111121, end: 20111124
  3. VELCADE [Suspect]
     Indication: MULTIPLE MYELOMA
     Dosage: 1.3 MG/M2, UNK
     Route: 042
     Dates: start: 20111121, end: 20111216

REACTIONS (1)
  - EYE INFECTION [None]
